FAERS Safety Report 6756051-5 (Version None)
Quarter: 2010Q2

REPORT INFORMATION
  Report Type: 
  Country: None (occurrence: None)
  Receive Date: 20100604
  Receipt Date: 20100525
  Transmission Date: 20101027
  Serious: Yes (Other)
  Sender: FDA-Public Use
  Company Number: US-PERRIGO-10US009986

PATIENT
  Sex: Male
  Weight: 90.703 kg

DRUGS (8)
  1. NICOTINE [Suspect]
     Indication: SMOKING CESSATION THERAPY
     Dosage: 4 MG EVERY 1 TO 2 HOURS
     Route: 002
     Dates: start: 20100507
  2. COUMADIN [Concomitant]
     Indication: ANTICOAGULANT THERAPY
     Dosage: 1 TABLET QD
     Route: 048
     Dates: start: 20090501
  3. ASPIRIN [Concomitant]
     Indication: ANTICOAGULANT THERAPY
     Dosage: 81 MG, QD
     Route: 048
     Dates: start: 20090501
  4. PLAVIX [Concomitant]
     Indication: DRUG USE FOR UNKNOWN INDICATION
     Dosage: 25 MG, QD
     Route: 048
     Dates: start: 20090501
  5. UNSPECIFIED DIABETIC MEDICATION [Concomitant]
     Indication: GLUCOSE TOLERANCE IMPAIRED
     Dosage: 2 MG, QD
     Route: 048
     Dates: start: 20090501
  6. EXFORGE [Concomitant]
     Indication: HYPERTENSION
     Dosage: 1 TABLET DAILY
     Route: 048
     Dates: start: 20090501
  7. PACERONE [Concomitant]
     Indication: ATRIAL FIBRILLATION
     Dosage: UNK
     Route: 048
     Dates: start: 20090501
  8. ANTIHYPERTENSIVES [Concomitant]
     Indication: HYPERTENSION
     Dosage: UNK
     Route: 048
     Dates: start: 20090501

REACTIONS (4)
  - ANXIETY [None]
  - DIARRHOEA [None]
  - DYSPNOEA [None]
  - OVERDOSE [None]
